FAERS Safety Report 4953669-7 (Version None)
Quarter: 2006Q1

REPORT INFORMATION
  Report Type: 
  Country: None (occurrence: None)
  Receive Date: 20060324
  Receipt Date: 20050315
  Transmission Date: 20060701
  Serious: Yes (Other)
  Sender: FDA-Public Use
  Company Number: US-MERCK-0503USA03153

PATIENT
  Age: 55 Year
  Sex: Male
  Weight: 104 kg

DRUGS (5)
  1. VIOXX [Suspect]
     Indication: ARTHRALGIA
     Route: 048
     Dates: start: 20010611, end: 20030223
  2. ASPIRIN [Concomitant]
     Route: 065
  3. LASIX [Concomitant]
     Route: 065
  4. GLUCOTROL [Concomitant]
     Route: 065
  5. ZESTRIL [Concomitant]
     Route: 065

REACTIONS (10)
  - CARDIAC DISORDER [None]
  - CARDIAC FAILURE [None]
  - CEREBROVASCULAR ACCIDENT [None]
  - CHEST PAIN [None]
  - HEPATOCELLULAR DAMAGE [None]
  - MYOCARDIAL INFARCTION [None]
  - POLYTRAUMATISM [None]
  - RENAL DISORDER [None]
  - THROMBOSIS [None]
  - ULCER [None]
